FAERS Safety Report 9421849 (Version 1)
Quarter: 2013Q3

REPORT INFORMATION
  Report Type: Report from Study
  Country: US (occurrence: US)
  Receive Date: 20130726
  Receipt Date: 20130726
  Transmission Date: 20140515
  Serious: Yes (Life-Threatening, Other)
  Sender: FDA-Public Use
  Company Number: US-BAYER-2013-087510

PATIENT
  Sex: Female

DRUGS (1)
  1. MIRENA [Suspect]
     Dosage: 20 MCG/24HR, CONT
     Route: 015

REACTIONS (14)
  - Suicidal ideation [Recovered/Resolved]
  - Mood swings [Recovered/Resolved]
  - Anxiety [Recovered/Resolved]
  - Anger [Recovered/Resolved]
  - Crying [Recovered/Resolved]
  - Device dislocation [Recovered/Resolved]
  - Nausea [Recovered/Resolved]
  - Rash [Recovered/Resolved]
  - Burning sensation [Recovered/Resolved]
  - Pain [Recovered/Resolved]
  - Abdominal distension [Recovered/Resolved]
  - Procedural pain [Recovered/Resolved]
  - Weight increased [None]
  - Abdominal pain lower [Recovered/Resolved]
